FAERS Safety Report 22102606 (Version 1)
Quarter: 2023Q1

REPORT INFORMATION
  Report Type: Spontaneous
  Country: NL (occurrence: NL)
  Receive Date: 20230316
  Receipt Date: 20230316
  Transmission Date: 20230417
  Serious: Yes (Other)
  Sender: FDA-Public Use
  Company Number: None

PATIENT
  Sex: Male
  Weight: 93 kg

DRUGS (1)
  1. STELARA [Suspect]
     Active Substance: USTEKINUMAB
     Indication: Psoriasis
     Dosage: 1X PER 3 MAANDEN
     Route: 058
     Dates: start: 20221221

REACTIONS (2)
  - Toothache [Not Recovered/Not Resolved]
  - Gingivitis [Not Recovered/Not Resolved]
